FAERS Safety Report 8501047 (Version 6)
Quarter: 2013Q3

REPORT INFORMATION
  Report Type: Spontaneous
  Country: JP (occurrence: JP)
  Receive Date: 20120410
  Receipt Date: 20130703
  Transmission Date: 20140515
  Serious: Yes (Hospitalization, Other)
  Sender: FDA-Public Use
  Company Number: PHHY2012JP029711

PATIENT
  Sex: 0

DRUGS (5)
  1. ZOLEDRONATE [Suspect]
     Indication: PROSTATE CANCER METASTATIC
     Dosage: 4 MG, PER ADMINISTRATION
     Route: 041
     Dates: start: 200805, end: 20111020
  2. LEUPLIN [Concomitant]
     Indication: PROSTATE CANCER
     Dosage: 3.75 MG
  3. DOCETAXEL [Concomitant]
     Indication: PROSTATE CANCER
     Dosage: 20 MG, UNK
  4. DECADRON [Concomitant]
     Indication: PROSTATE CANCER
     Dosage: 3.3 MG, UNK
  5. ALOXI [Concomitant]
     Indication: PROSTATE CANCER
     Dosage: 0.75 MG, UNK

REACTIONS (6)
  - Femur fracture [Recovering/Resolving]
  - Bone pain [Recovered/Resolved]
  - Fall [Unknown]
  - Injury [Unknown]
  - Impaired healing [Unknown]
  - Abasia [Recovered/Resolved]
